FAERS Safety Report 17075671 (Version 1)
Quarter: 2019Q4

REPORT INFORMATION
  Report Type: Spontaneous
  Country: US (occurrence: US)
  Receive Date: 20191125
  Receipt Date: 20191125
  Transmission Date: 20200122
  Serious: Yes (Life-Threatening, Hospitalization, Disabling, Other)
  Sender: FDA-Public Use
  Company Number: None

PATIENT
  Age: 59 Year
  Weight: 87.4 kg

DRUGS (3)
  1. ASPIRIN 81 MG DAILY [Concomitant]
  2. ATORVASTATIN 80MG DAILY [Concomitant]
  3. BRILINTA [Suspect]
     Active Substance: TICAGRELOR
     Route: 048

REACTIONS (2)
  - Intraventricular haemorrhage [None]
  - Unresponsive to stimuli [None]

NARRATIVE: CASE EVENT DATE: 20191125
